FAERS Safety Report 5745623-2 (Version None)
Quarter: 2008Q2

REPORT INFORMATION
  Report Type: 
  Country: None (occurrence: None)
  Receive Date: 20080521
  Receipt Date: 20080512
  Transmission Date: 20081010
  Serious: Yes (Hospitalization, Other)
  Sender: FDA-Public Use
  Company Number: US-PFIZER INC-2007044401

PATIENT
  Sex: Female
  Weight: 131.1 kg

DRUGS (1)
  1. CELEBREX [Suspect]
     Indication: ARTHRALGIA
     Dates: start: 20021201, end: 20030901

REACTIONS (5)
  - ABASIA [None]
  - APHONIA [None]
  - CARDIOVASCULAR DISORDER [None]
  - MUTISM [None]
  - VISUAL DISTURBANCE [None]
